FAERS Safety Report 18190387 (Version 1)
Quarter: 2020Q3

REPORT INFORMATION
  Report Type: Spontaneous
  Country: US (occurrence: US)
  Receive Date: 20200824
  Receipt Date: 20200824
  Transmission Date: 20201103
  Serious: Yes (Disabling, Other)
  Sender: FDA-Public Use
  Company Number: US-LANNETT COMPANY, INC.-US-2020LAN000204

PATIENT
  Age: 55 Year
  Sex: Female

DRUGS (1)
  1. BACLOFEN. [Suspect]
     Active Substance: BACLOFEN
     Indication: MUSCLE SPASMS
     Dosage: 10 MG, TID
     Route: 048
     Dates: start: 20200617, end: 20200625

REACTIONS (8)
  - Loss of personal independence in daily activities [Unknown]
  - Bedridden [Unknown]
  - Muscular weakness [Unknown]
  - Fall [Unknown]
  - Gait inability [Unknown]
  - Dyskinesia [Recovering/Resolving]
  - Tooth injury [Not Recovered/Not Resolved]
  - Muscle twitching [Unknown]

NARRATIVE: CASE EVENT DATE: 202006
